FAERS Safety Report 7011180-6 (Version None)
Quarter: 2010Q3

REPORT INFORMATION
  Report Type: 
  Country: None (occurrence: None)
  Receive Date: 20100922
  Receipt Date: 20100922
  Transmission Date: 20110219
  Serious: Yes (Other)
  Sender: FDA-Public Use
  Company Number: None

PATIENT
  Age: 53 Year
  Sex: Female
  Weight: 92.9874 kg

DRUGS (1)
  1. LISINOPRIL AND HYDROCHLOROTHIAZIDE [Suspect]
     Indication: HYPERTENSION
     Dosage: 20/25 DAILY PO
     Route: 048
     Dates: start: 20100106, end: 20100920

REACTIONS (4)
  - OEDEMA [None]
  - PARAESTHESIA [None]
  - PRURITUS [None]
  - URTICARIA [None]
